FAERS Safety Report 14006598 (Version 1)
Quarter: 2017Q3

REPORT INFORMATION
  Report Type: Spontaneous
  Country: PR (occurrence: PR)
  Receive Date: 20170925
  Receipt Date: 20170925
  Transmission Date: 20171128
  Serious: Yes (Hospitalization)
  Sender: FDA-Public Use
  Company Number: PR-AMGEN-PRISP2017142323

PATIENT
  Age: 56 Year
  Sex: Female

DRUGS (7)
  1. ENBREL [Suspect]
     Active Substance: ETANERCEPT
     Indication: RHEUMATOID ARTHRITIS
     Dosage: UNK
     Route: 065
     Dates: end: 2013
  2. SYNTHROID [Concomitant]
     Active Substance: LEVOTHYROXINE SODIUM
     Indication: THYROID DISORDER
  3. PLAQUENIL [Concomitant]
     Active Substance: HYDROXYCHLOROQUINE SULFATE
     Indication: SYSTEMIC LUPUS ERYTHEMATOSUS
     Dosage: UNK
     Dates: start: 2013
  4. VITAMIN D [Concomitant]
     Active Substance: CHOLECALCIFEROL
  5. PROLIA [Suspect]
     Active Substance: DENOSUMAB
     Indication: OSTEOPOROSIS POSTMENOPAUSAL
     Dosage: UNK
     Route: 065
     Dates: start: 20170911
  6. SYMBICORT [Concomitant]
     Active Substance: BUDESONIDE\FORMOTEROL FUMARATE DIHYDRATE
     Indication: RESPIRATORY DISORDER
  7. SINGULAIR [Concomitant]
     Active Substance: MONTELUKAST SODIUM

REACTIONS (13)
  - Skin sensitisation [Unknown]
  - Paraesthesia [Not Recovered/Not Resolved]
  - Arthralgia [Unknown]
  - Intentional product misuse [Unknown]
  - Influenza like illness [Unknown]
  - Abdominal discomfort [Unknown]
  - Asthenia [Unknown]
  - Hypoaesthesia [Unknown]
  - Blood immunoglobulin G abnormal [Unknown]
  - Feeling abnormal [Unknown]
  - Bronchitis [Unknown]
  - Cystitis [Unknown]
  - Pain of skin [Unknown]
